FAERS Safety Report 16226622 (Version 1)
Quarter: 2019Q2

REPORT INFORMATION
  Report Type: Spontaneous
  Country: JP (occurrence: JP)
  Receive Date: 20190423
  Receipt Date: 20190423
  Transmission Date: 20190711
  Serious: Yes (Hospitalization, Other)
  Sender: FDA-Public Use
  Company Number: JP-ACTELION-A-CH2019-189113

PATIENT
  Sex: Female

DRUGS (3)
  1. EPOPROSTENOL SODIUM. [Suspect]
     Active Substance: EPOPROSTENOL SODIUM
     Indication: PULMONARY ARTERIAL HYPERTENSION
     Dosage: 0.5 NG/KG, PER MIN
     Route: 042
  2. TADALAFIL. [Concomitant]
     Active Substance: TADALAFIL
     Dosage: 40 MG, QD
     Route: 048
  3. EPOPROSTENOL SODIUM. [Suspect]
     Active Substance: EPOPROSTENOL SODIUM
     Dosage: 8 NG/KG, PER MIN
     Route: 042

REACTIONS (11)
  - Dyspnoea [Unknown]
  - Pulmonary arterial hypertension [Unknown]
  - Caesarean section [Recovered/Resolved]
  - Fatigue [Unknown]
  - Left ventricular dysfunction [Unknown]
  - Exposure during pregnancy [Unknown]
  - Cardiac failure congestive [Unknown]
  - Productive cough [Unknown]
  - Oedema [Unknown]
  - Cough [Unknown]
  - Condition aggravated [Unknown]
